FAERS Safety Report 20851913 (Version 1)
Quarter: 2022Q2

REPORT INFORMATION
  Report Type: Spontaneous
  Country: NO (occurrence: NO)
  Receive Date: 20220520
  Receipt Date: 20220520
  Transmission Date: 20220720
  Serious: Yes (Life-Threatening, Hospitalization, Disabling)
  Sender: FDA-Public Use
  Company Number: None

PATIENT
  Age: 79 Year
  Sex: Female

DRUGS (16)
  1. KEYTRUDA [Suspect]
     Active Substance: PEMBROLIZUMAB
     Indication: Non-small cell lung cancer
     Dosage: 200 MG, ONCE. FIRST ROUND OF TREATMENT WITH PEMBROLIZUMAB; 25 MG/ML
     Route: 042
     Dates: start: 20220411, end: 20220411
  2. ALBUTEROL SULFATE [Concomitant]
     Active Substance: ALBUTEROL SULFATE
     Dosage: UP TO 4 TIMES A DAY, WHEN NEEDED CONTINUED USE OF MEDICINAL PRODUCT; ADDITIONAL INFORMATION: R03AC02
  3. ATROVENT [Concomitant]
     Active Substance: IPRATROPIUM BROMIDE
     Dosage: UP TO 4 TIMES A DAY, WHEN NEEDED CONTINUED USE OF MEDICINAL PRODUCT; ADDITIONAL INFORMATION: R03BB01
  4. VENLAFAXINE HYDROCHLORIDE [Concomitant]
     Active Substance: VENLAFAXINE HYDROCHLORIDE
     Dosage: UNK; ADDITIONAL INFORMATION: N06AX16 - VENLAFAXINE
  5. POLYETHYLENE GLYCOL 3350\POTASSIUM CHLORIDE\SODIUM BICARBONATE\SODIUM [Concomitant]
     Active Substance: POLYETHYLENE GLYCOL 3350\POTASSIUM CHLORIDE\SODIUM BICARBONATE\SODIUM CHLORIDE
     Dosage: UNK; ADDITIONAL INFORMATION: A06AD65 - MACROGOL, COMBINATIONS
  6. CHOLECALCIFEROL [Concomitant]
     Active Substance: CHOLECALCIFEROL
     Dosage: UNK; ADDITIONAL INFORMATION: A11CC05 - COLECALCIFEROL
  7. ASPIRIN\MAGNESIUM OXIDE [Concomitant]
     Active Substance: ASPIRIN\MAGNESIUM OXIDE
     Dosage: CONTINUED USE OF MEDICINAL PRODUCT; ADDITIONAL INFORMATION: B01AC06 - ACETYLSALICYLIC ACID
  8. OXAZEPAM [Concomitant]
     Active Substance: OXAZEPAM
     Dosage: WHEN NEEDED CONTINUED USE OF MEDICINAL PRODUCT; ADDITIONAL INFORMATION: N05BA04 - OXAZEPAM
  9. SODIUM PICOSULFATE [Concomitant]
     Active Substance: SODIUM PICOSULFATE
     Dosage: WHEN NEEDED CONTINUED USE OF MEDICINAL PRODUCT; 7.5 MG/ML; ADDITIONAL INFORMATION: A06AB08 - SODIUM
  10. ACETAMINOPHEN [Concomitant]
     Active Substance: ACETAMINOPHEN
     Dosage: UNK; ADDITIONAL INFORMATION: N02BE01 - PARACETAMOL
  11. OXYCODONE HYDROCHLORIDE [Concomitant]
     Active Substance: OXYCODONE HYDROCHLORIDE
     Dosage: UP TO 3 TIMES A DAY CONTINUED USE OF MEDICINAL PRODUCT; ADDITIONAL INFORMATION: N02AA05 - OXYCODONE
  12. BETNOVAT [BETAMETHASONE] [Concomitant]
     Dosage: UNK; ADDITIONAL INFORMATION: D07AC01 - BETAMETASONE
  13. GAVISCON ES [Concomitant]
     Dosage: 10-15 ML CONTINUED USE OF MEDICINAL PRODUCT; ADDITIONAL INFORMATION: A02BX13 - ALGINACID
  14. OXYCONTIN [Concomitant]
     Active Substance: OXYCODONE HYDROCHLORIDE
     Dosage: CONTINUED USE OF MEDICINAL PRODUCT; ADDITIONAL INFORMATION: N02AA05 - OXYCODONE
  15. BETAMETHASONE DIPROPIONATE [Concomitant]
     Active Substance: BETAMETHASONE DIPROPIONATE
     Dosage: UNK; ADDITIONAL INFORMATION: D07XC01 - BETAMETASONE
  16. BECLOMETHASONE DIPROPIONATE\FORMOTEROL FUMARATE\GLYCOPYRROLATE [Concomitant]
     Active Substance: BECLOMETHASONE DIPROPIONATE\FORMOTEROL FUMARATE\GLYCOPYRROLATE
     Dosage: CONTINUED USE OF MEDICINAL PRODUCT; ADDITIONAL INFORMATION: R03AL09 - FORMOTEROL, GLYCOPYRRONIUM BRO
     Route: 055

REACTIONS (1)
  - Stress cardiomyopathy [Recovering/Resolving]

NARRATIVE: CASE EVENT DATE: 20220412
